FAERS Safety Report 8845164 (Version 1)
Quarter: 2012Q4

REPORT INFORMATION
  Report Type: 
  Country: JP (occurrence: JP)
  Receive Date: 20121017
  Receipt Date: 20121017
  Transmission Date: 20130627
  Serious: No
  Sender: FDA-Public Use
  Company Number: JP-OTSUKA-JP-2012-16397

PATIENT
  Sex: Male

DRUGS (7)
  1. SAMSCA [Suspect]
     Indication: CARDIAC FAILURE
     Dosage: 7.5 Mg milligram(s), qod
     Route: 048
     Dates: start: 20120906, end: 20120923
  2. SAMSCA [Suspect]
     Dosage: 7.5 Mg milligram(s), daily dose
     Route: 048
     Dates: start: 20120924
  3. BEZATOL SR [Suspect]
     Dosage: 200 Mg milligram(s), daily dose
     Route: 048
     Dates: start: 20120910, end: 20120912
  4. BEZATOL SR [Suspect]
     Dosage: 400 Mg milligram(s), daily dose
     Route: 048
     Dates: start: 20120913, end: 20120924
  5. BEZATOL SR [Suspect]
     Dosage: 200 Mg milligram(s), daily dose
     Route: 048
     Dates: start: 20120925
  6. SOLDACTONE [Concomitant]
     Dosage: UNK
     Route: 041
  7. HANP [Concomitant]
     Dosage: UNK

REACTIONS (1)
  - Dermatitis exfoliative [Recovered/Resolved]
